FAERS Safety Report 10160497 (Version 2)
Quarter: 2014Q4

REPORT INFORMATION
  Report Type: Spontaneous
  Country: IT (occurrence: IT)
  Receive Date: 20140508
  Receipt Date: 20141023
  Transmission Date: 20150528
  Serious: Yes (Hospitalization)
  Sender: FDA-Public Use
  Company Number: IT-ABBVIE-14P-083-1235510-00

PATIENT
  Age: 47 Year
  Sex: Female

DRUGS (3)
  1. LANSOPRAZOLE RATIOPHARM [Concomitant]
     Indication: PRODUCT USED FOR UNKNOWN INDICATION
  2. KLACID [Suspect]
     Active Substance: CLARITHROMYCIN
     Indication: PERICARDITIS
     Route: 048
     Dates: start: 20140408, end: 20140411
  3. DELTACORTENE [Concomitant]
     Active Substance: PREDNISONE
     Indication: PRODUCT USED FOR UNKNOWN INDICATION

REACTIONS (1)
  - Bradycardia [Recovered/Resolved]

NARRATIVE: CASE EVENT DATE: 20140411
